FAERS Safety Report 6698572-X (Version None)
Quarter: 2010Q2

REPORT INFORMATION
  Report Type: 
  Country: None (occurrence: None)
  Receive Date: 20100427
  Receipt Date: 20100415
  Transmission Date: 20101027
  Serious: No
  Sender: FDA-Public Use
  Company Number: US-JNJFOC-20100404563

PATIENT
  Sex: Female
  Weight: 66.23 kg

DRUGS (3)
  1. FENTANYL CITRATE [Suspect]
     Indication: BACK PAIN
     Dosage: NDC# 50458-0093-05
     Route: 062
     Dates: start: 20100407
  2. NEURONTIN [Concomitant]
     Indication: NEURALGIA
     Dosage: 600MG 1 IN AM AND 2 IN PM
     Route: 048
  3. MOTRIN [Concomitant]
     Indication: PAIN
     Route: 048

REACTIONS (2)
  - PAIN [None]
  - TREATMENT NONCOMPLIANCE [None]
